FAERS Safety Report 16156461 (Version 1)
Quarter: 2019Q2

REPORT INFORMATION
  Report Type: Spontaneous
  Country: US (occurrence: US)
  Receive Date: 20190404
  Receipt Date: 20190404
  Transmission Date: 20190711
  Serious: Yes (Other)
  Sender: FDA-Public Use
  Company Number: US-DRREDDYS-USA/USA/19/0109212

PATIENT
  Age: 6 Year
  Sex: Female

DRUGS (3)
  1. MERCAPTOPURINE. [Suspect]
     Active Substance: MERCAPTOPURINE
     Indication: ACUTE LYMPHOCYTIC LEUKAEMIA
     Dosage: 75 MG/M2/DAY
     Route: 065
  2. MERCAPTOPURINE. [Suspect]
     Active Substance: MERCAPTOPURINE
     Dosage: 80 PERCENT DOSE REDUCTION
     Route: 065
  3. MERCAPTOPURINE. [Suspect]
     Active Substance: MERCAPTOPURINE
     Dosage: 50 PERCENT DOSE REDUCTION
     Route: 065

REACTIONS (10)
  - Asthenia [Unknown]
  - Nausea [Unknown]
  - Hypoglycaemia [Recovered/Resolved]
  - Ocular icterus [Unknown]
  - Transaminases increased [Unknown]
  - Jaundice [Unknown]
  - Vomiting [Unknown]
  - Neutropenia [Recovered/Resolved]
  - Blood bilirubin increased [Unknown]
  - Lactic acidosis [Unknown]
